FAERS Safety Report 10216899 (Version 1)
Quarter: 2014Q2

REPORT INFORMATION
  Report Type: Spontaneous
  Country: IT (occurrence: IT)
  Receive Date: 20140604
  Receipt Date: 20140604
  Transmission Date: 20141212
  Serious: Yes (Other)
  Sender: FDA-Public Use
  Company Number: IT-BRISTOL-MYERS SQUIBB COMPANY-20844023

PATIENT
  Sex: Male

DRUGS (1)
  1. ORENCIA FOR INJ [Suspect]

REACTIONS (1)
  - Hypertensive crisis [Unknown]
